FAERS Safety Report 21031014 (Version 1)
Quarter: 2022Q3

REPORT INFORMATION
  Report Type: Spontaneous
  Country: US (occurrence: None)
  Receive Date: 20220701
  Receipt Date: 20220701
  Transmission Date: 20221027
  Serious: No
  Sender: FDA-Public Use
  Company Number: US-ROCHE-2967050

PATIENT
  Age: 81 Year
  Sex: Female
  Weight: 49.940 kg

DRUGS (6)
  1. ACTEMRA [Suspect]
     Active Substance: TOCILIZUMAB
     Indication: Giant cell arteritis
     Dosage: STRENGTH: 162 MG/0.9 ML
     Route: 058
     Dates: start: 20210910
  2. ACTEMRA [Suspect]
     Active Substance: TOCILIZUMAB
  3. ACTEMRA [Suspect]
     Active Substance: TOCILIZUMAB
     Indication: Giant cell arteritis
  4. ACTEMRA [Suspect]
     Active Substance: TOCILIZUMAB
  5. PREDNISONE [Concomitant]
     Active Substance: PREDNISONE
     Dosage: TAPERING DOSES OF PREDNISONE-WAS ON HIGH DOSES
     Route: 048
     Dates: start: 202102
  6. FORTEO [Concomitant]
     Active Substance: TERIPARATIDE
     Dosage: DAILY INJECTION
     Dates: start: 20210915

REACTIONS (5)
  - Device issue [Unknown]
  - Product dose omission issue [Unknown]
  - Wound [Unknown]
  - Bone pain [Not Recovered/Not Resolved]
  - Impaired healing [Not Recovered/Not Resolved]

NARRATIVE: CASE EVENT DATE: 20211119
